FAERS Safety Report 11228029 (Version 1)
Quarter: 2015Q2

REPORT INFORMATION
  Report Type: Spontaneous
  Country: US (occurrence: None)
  Receive Date: 20150629
  Receipt Date: 20150629
  Transmission Date: 20150821
  Serious: Yes (Hospitalization)
  Sender: FDA-Public Use
  Company Number: None

PATIENT
  Age: 29 Year
  Sex: Male
  Weight: 59.3 kg

DRUGS (9)
  1. DAUNORUBICIN [Suspect]
     Active Substance: DAUNORUBICIN
     Dates: end: 20081211
  2. DEXAMETHASONE. [Suspect]
     Active Substance: DEXAMETHASONE
     Dates: end: 20091028
  3. PEG-L-ASPARAGINASE (K-H) [Suspect]
     Active Substance: PEGASPARGASE
     Dates: end: 20091012
  4. MERCAPTOPURINE. [Suspect]
     Active Substance: MERCAPTOPURINE
     Dates: end: 20120323
  5. PREDNISONE. [Suspect]
     Active Substance: PREDNISONE
     Dates: end: 20100913
  6. VINCRISTINE SULFATE. [Suspect]
     Active Substance: VINCRISTINE SULFATE
     Dates: end: 20120301
  7. CYTARABINE. [Suspect]
     Active Substance: CYTARABINE
     Dates: end: 20090222
  8. CYCLOPHOSPHAMIDE. [Suspect]
     Active Substance: CYCLOPHOSPHAMIDE
     Dates: end: 20090212
  9. METHOTREXATE [Suspect]
     Active Substance: METHOTREXATE
     Dates: end: 20120322

REACTIONS (1)
  - Metastasis [None]

NARRATIVE: CASE EVENT DATE: 20150615
